FAERS Safety Report 5203810-6 (Version None)
Quarter: 2007Q1

REPORT INFORMATION
  Report Type: 
  Country: None (occurrence: None)
  Receive Date: 20070110
  Receipt Date: 20070105
  Transmission Date: 20070707
  Serious: Yes (Hospitalization, Other)
  Sender: FDA-Public Use
  Company Number: GB-BRISTOL-MYERS SQUIBB COMPANY-13634548

PATIENT
  Age: 73 Year
  Sex: Male

DRUGS (5)
  1. CARBOPLATIN [Suspect]
     Indication: GASTRIC CANCER
     Route: 042
     Dates: start: 20061127, end: 20061127
  2. CAPECITABINE [Concomitant]
     Indication: GASTRIC CANCER
     Route: 042
     Dates: start: 20061003, end: 20061024
  3. DEXAMETHASONE [Concomitant]
     Indication: PROPHYLAXIS OF NAUSEA AND VOMITING
     Route: 048
     Dates: start: 20061003, end: 20061006
  4. FLECAINIDE ACETATE [Concomitant]
     Indication: CARDIAC DISORDER
     Route: 048
     Dates: start: 20061128
  5. METOCLOPRAMIDE [Concomitant]
     Indication: PROPHYLAXIS OF NAUSEA AND VOMITING
     Route: 048
     Dates: start: 20061003, end: 20061006

REACTIONS (3)
  - HYPOTENSION [None]
  - SUPRAVENTRICULAR TACHYCARDIA [None]
  - VISION BLURRED [None]
